FAERS Safety Report 4462334-4 (Version None)
Quarter: 2004Q3

REPORT INFORMATION
  Report Type: 
  Country: None (occurrence: None)
  Receive Date: 20040929
  Receipt Date: 20040924
  Transmission Date: 20050211
  Serious: Yes (Death, Other)
  Sender: FDA-Public Use
  Company Number: PHBS2004IS12784

PATIENT
  Age: 59 Year
  Sex: Male

DRUGS (3)
  1. CYCLOSPORINE [Suspect]
     Indication: RENAL TRANSPLANT
     Route: 065
  2. AZATHIOPRINE [Suspect]
     Indication: RENAL TRANSPLANT
     Route: 065
  3. PREDNISOLONE [Suspect]
     Indication: RENAL TRANSPLANT
     Route: 065

REACTIONS (17)
  - ASTHENIA [None]
  - BRONCHOPNEUMONIA [None]
  - CANDIDURIA [None]
  - ENTEROCOCCAL SEPSIS [None]
  - ERYTHEMA [None]
  - FUNGAL CYSTITIS [None]
  - FUNGAL SKIN INFECTION [None]
  - HAEMODIALYSIS [None]
  - NAIL DISCOLOURATION [None]
  - NAIL HYPERTROPHY [None]
  - NAIL TINEA [None]
  - RASH ERYTHEMATOUS [None]
  - RASH PUSTULAR [None]
  - RENAL FAILURE [None]
  - SKIN SWELLING [None]
  - SKIN ULCER [None]
  - URINARY TRACT INFECTION FUNGAL [None]
